FAERS Safety Report 7071612-4 (Version None)
Quarter: 2010Q4

REPORT INFORMATION
  Report Type: 
  Country: None (occurrence: None)
  Receive Date: 20101029
  Receipt Date: 20090928
  Transmission Date: 20110411
  Serious: No
  Sender: FDA-Public Use
  Company Number: A0809323A

PATIENT
  Age: 56 Year
  Sex: Female

DRUGS (3)
  1. ADVAIR DISKUS 100/50 [Suspect]
     Indication: RESPIRATORY TRACT CONGESTION
     Dosage: 1PUFF TWICE PER DAY
     Route: 055
     Dates: start: 20090922, end: 20090924
  2. FLOVENT [Suspect]
     Indication: RESPIRATORY TRACT CONGESTION
     Dosage: 2PUFF TWICE PER DAY
     Route: 055
     Dates: start: 20050101, end: 20090922
  3. HORMONE REPLACEMENT [Concomitant]

REACTIONS (5)
  - BLOOD PRESSURE INCREASED [None]
  - FATIGUE [None]
  - HEART RATE IRREGULAR [None]
  - RESPIRATORY TRACT CONGESTION [None]
  - TREMOR [None]
